FAERS Safety Report 4378640-8 (Version None)
Quarter: 2004Q2

REPORT INFORMATION
  Report Type: 
  Country: None (occurrence: None)
  Receive Date: 20040610
  Receipt Date: 20040601
  Transmission Date: 20050107
  Serious: Yes (Hospitalization)
  Sender: FDA-Public Use
  Company Number: 2004036594

PATIENT
  Age: 63 Year
  Sex: Male

DRUGS (6)
  1. ATORVASTATIN (ATORVASTATIN) [Suspect]
     Indication: ILL-DEFINED DISORDER
  2. DILTIAZEM HYDROCHLORIDE [Suspect]
     Indication: ILL-DEFINED DISORDER
  3. VANCOMYCIN [Suspect]
     Indication: IMPLANT SITE INFECTION
  4. RIFAMPICIN [Suspect]
     Indication: IMPLANT SITE INFECTION
  5. ACETAMINOPHEN [Concomitant]
  6. TEMAZEPAM [Concomitant]

REACTIONS (7)
  - ACUTE GENERALISED EXANTHEMATOUS PUSTULOSIS [None]
  - ANURIA [None]
  - HYPOTENSION [None]
  - IMPLANT SITE INFECTION [None]
  - LEUKOPENIA [None]
  - SKIN TEST POSITIVE [None]
  - TACHYCARDIA [None]
